FAERS Safety Report 25015729 (Version 1)
Quarter: 2025Q1

REPORT INFORMATION
  Report Type: Spontaneous
  Country: CN (occurrence: CN)
  Receive Date: 20250227
  Receipt Date: 20250227
  Transmission Date: 20250409
  Serious: Yes (Hospitalization)
  Sender: ROCHE
  Company Number: CN-ROCHE-10000217673

PATIENT
  Age: 42 Year
  Sex: Female
  Weight: 56 kg

DRUGS (9)
  1. TRASTUZUMAB [Suspect]
     Active Substance: TRASTUZUMAB
     Indication: Breast cancer
     Route: 042
     Dates: start: 20241223, end: 20241223
  2. TRASTUZUMAB [Suspect]
     Active Substance: TRASTUZUMAB
     Indication: Chemotherapy
  3. TRASTUZUMAB [Suspect]
     Active Substance: TRASTUZUMAB
     Indication: Neoplasm
  4. PYROTINIB [Suspect]
     Active Substance: PYROTINIB
     Indication: Breast cancer
     Route: 048
     Dates: start: 20241223, end: 20250103
  5. PYROTINIB [Suspect]
     Active Substance: PYROTINIB
     Indication: Chemotherapy
  6. PYROTINIB [Suspect]
     Active Substance: PYROTINIB
     Indication: Neoplasm
  7. ERIBULIN MESYLATE [Suspect]
     Active Substance: ERIBULIN MESYLATE
     Indication: Breast cancer
     Dosage: D8
     Route: 042
     Dates: start: 20241223, end: 20241223
  8. ERIBULIN MESYLATE [Suspect]
     Active Substance: ERIBULIN MESYLATE
     Indication: Chemotherapy
     Dosage: D1
     Route: 042
     Dates: start: 20241223, end: 20241223
  9. ERIBULIN MESYLATE [Suspect]
     Active Substance: ERIBULIN MESYLATE
     Indication: Neoplasm

REACTIONS (1)
  - Myelosuppression [Recovering/Resolving]

NARRATIVE: CASE EVENT DATE: 20250103
